FAERS Safety Report 7469688-5 (Version None)
Quarter: 2011Q2

REPORT INFORMATION
  Report Type: 
  Country: None (occurrence: None)
  Receive Date: 20110510
  Receipt Date: 20110505
  Transmission Date: 20111010
  Serious: Yes (Life-Threatening, Hospitalization)
  Sender: FDA-Public Use
  Company Number: US-BRISTOL-MYERS SQUIBB COMPANY-15620727

PATIENT
  Age: 61 Year
  Sex: Female
  Weight: 123 kg

DRUGS (13)
  1. ADRIAMYCIN PFS [Suspect]
     Indication: BREAST CANCER
     Dosage: 60MG/M2
     Route: 042
     Dates: start: 20110105, end: 20110303
  2. VITAMIN B-12 [Concomitant]
  3. PHENERGAN HCL [Concomitant]
  4. VANCOMYCIN [Concomitant]
     Indication: STAPHYLOCOCCAL INFECTION
     Dates: start: 20110321
  5. VITAMIN D [Concomitant]
  6. ZOFRAN [Concomitant]
  7. COUMADIN [Concomitant]
     Indication: VENOUS THROMBOSIS
     Dates: start: 20110321
  8. CYTOXAN [Suspect]
     Indication: BREAST CANCER
     Dosage: 600MG/M2
     Route: 042
     Dates: start: 20110105, end: 20110303
  9. NEULASTA [Concomitant]
     Indication: NEUTROPENIA
     Dates: start: 20110304, end: 20110304
  10. CHROMIUM CHLORIDE [Concomitant]
  11. METFORMIN HCL [Concomitant]
  12. MULTI-VITAMINS [Concomitant]
  13. ATIVAN [Concomitant]

REACTIONS (2)
  - PANCYTOPENIA [None]
  - RENAL FAILURE ACUTE [None]
